FAERS Safety Report 6802425-3 (Version None)
Quarter: 2010Q2

REPORT INFORMATION
  Report Type: 
  Country: None (occurrence: None)
  Receive Date: 20100628
  Receipt Date: 20100617
  Transmission Date: 20101027
  Serious: No
  Sender: FDA-Public Use
  Company Number: US-BIOGENIDEC-2010BI021212

PATIENT
  Age: 41 Year
  Sex: Female

DRUGS (2)
  1. TYSABRI [Suspect]
     Indication: MULTIPLE SCLEROSIS
     Route: 042
     Dates: start: 20071102
  2. NUVIGIL [Concomitant]
     Indication: FATIGUE
     Dates: start: 20100601

REACTIONS (4)
  - CHILLS [None]
  - HEADACHE [None]
  - MALAISE [None]
  - NAUSEA [None]
